FAERS Safety Report 6747115-0 (Version None)
Quarter: 2010Q2

REPORT INFORMATION
  Report Type: 
  Country: None (occurrence: None)
  Receive Date: 20100528
  Receipt Date: 20100525
  Transmission Date: 20101027
  Serious: Yes (Life-Threatening, Hospitalization, Disabling, Other)
  Sender: FDA-Public Use
  Company Number: PH-PFIZER INC-2010035263

PATIENT
  Age: 76 Year
  Sex: Male
  Weight: 71 kg

DRUGS (15)
  1. IBUPROFEN [Suspect]
     Indication: OSTEOARTHRITIS
     Dosage: UNK
     Route: 048
     Dates: start: 20091111, end: 20091201
  2. NAPROXEN [Suspect]
     Indication: OSTEOARTHRITIS
     Dosage: UNK
     Route: 048
     Dates: start: 20091111, end: 20091201
  3. BLINDED *NO SUBJECT DRUG [Suspect]
     Indication: OSTEOARTHRITIS
     Dosage: UNK
     Route: 048
     Dates: start: 20091111, end: 20091201
  4. BLINDED *PLACEBO [Suspect]
     Indication: OSTEOARTHRITIS
     Dosage: UNK
     Route: 048
     Dates: start: 20091111, end: 20091201
  5. BLINDED CELECOXIB [Suspect]
     Indication: OSTEOARTHRITIS
     Dosage: UNK
     Route: 048
     Dates: start: 20091111, end: 20091201
  6. IBUPROFEN [Suspect]
     Dosage: UNK
     Route: 048
     Dates: start: 20091111, end: 20091201
  7. NAPROXEN [Suspect]
     Dosage: UNK
     Route: 048
     Dates: start: 20091111, end: 20091201
  8. NEXIUM [Concomitant]
     Indication: PROPHYLAXIS AGAINST GASTROINTESTINAL ULCER
     Dosage: 20 MG, 1X/DAY
     Route: 048
     Dates: start: 20091111, end: 20091201
  9. PIPERACILLIN SODIUM W/TAZOBACTAM SODIUM [Concomitant]
     Indication: CELLULITIS
     Dosage: 4.5 G, 3X/DAY
     Route: 042
     Dates: start: 20091202, end: 20091209
  10. TRAMAL [Concomitant]
     Indication: OSTEOARTHRITIS
     Dosage: 100 MG, 4X/DAY
     Dates: start: 20091202, end: 20091207
  11. TRAMAL [Concomitant]
     Dosage: 50 MG, 4X/DAY
     Dates: start: 20091208
  12. CLINDAMYCIN HCL [Concomitant]
     Indication: CELLULITIS
     Dosage: 300 MG, 4X/DAY
     Route: 048
     Dates: start: 20091203, end: 20091205
  13. DYNASTAT [Concomitant]
     Indication: OSTEOARTHRITIS
     Dosage: 40 MG, 1X/DAY
     Dates: start: 20091206, end: 20091207
  14. AUGMENTIN '125' [Concomitant]
     Indication: CELLULITIS
     Dosage: 1 G, 2X/DAY
     Dates: start: 20091209, end: 20091215
  15. PLETAL [Concomitant]
     Indication: PERIPHERAL ISCHAEMIA
     Dosage: 100 MG, 2X/DAY
     Route: 048
     Dates: start: 20091210

REACTIONS (2)
  - HAEMATOMA [None]
  - PERIPHERAL ISCHAEMIA [None]
